FAERS Safety Report 7864783-0 (Version None)
Quarter: 2011Q4

REPORT INFORMATION
  Report Type: 
  Country: None (occurrence: None)
  Receive Date: 20111028
  Receipt Date: 20111020
  Transmission Date: 20120403
  Serious: Yes (Hospitalization)
  Sender: FDA-Public Use
  Company Number: US-CELGENEUS-163-21880-11090591

PATIENT
  Sex: Female

DRUGS (9)
  1. LYRICA [Concomitant]
     Route: 065
  2. ASPIRIN [Concomitant]
     Route: 065
  3. ESTRADIOL [Concomitant]
     Route: 065
  4. DEXAMETHASONE [Concomitant]
     Dosage: 4 MILLIGRAM
     Route: 065
  5. SODIUM BICARBONATE [Concomitant]
     Route: 065
  6. REVLIMID [Suspect]
     Indication: MULTIPLE MYELOMA
     Dosage: 25 MILLIGRAM
     Route: 048
     Dates: start: 20110723
  7. ZEMPLAR [Concomitant]
     Route: 065
  8. AMLODIPINE [Concomitant]
     Route: 065
  9. VITAMIN D [Concomitant]
     Route: 065

REACTIONS (1)
  - RENAL FAILURE [None]
